FAERS Safety Report 9207270 (Version 1)
Quarter: 2013Q1

REPORT INFORMATION
  Report Type: Spontaneous
  Country: US (occurrence: None)
  Receive Date: 20120718
  Receipt Date: 20120718
  Transmission Date: 20140127
  Serious: Yes (Other)
  Sender: FDA-Public Use
  Company Number: 163-50794-11072319

PATIENT
  Sex: Male

DRUGS (3)
  1. VIDAZA [Suspect]
     Indication: MYELODYSPLASTIC SYNDROME
     Route: 048
  2. VIDAZA [Suspect]
     Indication: CHRONIC MYELOMONOCYTIC LEUKAEMIA
     Route: 048
  3. BLOOD (BLOOD AND RELATED PRODUCTS )UNKNOWN [Concomitant]

REACTIONS (3)
  - Haematochezia [None]
  - Platelet count decreased [None]
  - Gastrooesophageal reflux disease [None]
